FAERS Safety Report 18440982 (Version 1)
Quarter: 2020Q4

REPORT INFORMATION
  Report Type: Spontaneous
  Country: US (occurrence: US)
  Receive Date: 20201029
  Receipt Date: 20201029
  Transmission Date: 20210114
  Serious: No
  Sender: FDA-Public Use
  Company Number: None

PATIENT
  Age: 64 Year
  Sex: Female
  Weight: 77.56 kg

DRUGS (1)
  1. DIVALPROEX SODIUM\VALPROIC ACID [Suspect]
     Active Substance: DIVALPROEX SODIUM\VALPROIC ACID
     Indication: MIGRAINE
     Dates: start: 20200915

REACTIONS (4)
  - Abdominal pain [None]
  - Nausea [None]
  - Tremor [None]
  - Diarrhoea [None]

NARRATIVE: CASE EVENT DATE: 20201020
